FAERS Safety Report 5597453-2 (Version None)
Quarter: 2007Q4

REPORT INFORMATION
  Report Type: 
  Country: None (occurrence: None)
  Receive Date: 20071221
  Receipt Date: 20070827
  Transmission Date: 20080405
  Serious: No
  Sender: FDA-Public Use
  Company Number: SPV1-2007-03972

PATIENT
  Age: 55 Year
  Sex: Male
  Weight: 90.7 kg

DRUGS (6)
  1. VYVANSE [Suspect]
     Indication: ATTENTION DEFICIT/HYPERACTIVITY DISORDER
     Dosage: 90 MG, 1/XDAY:QD, ORAL
     Route: 048
     Dates: start: 20070601, end: 20070824
  2. PREVACID [Concomitant]
  3. TRICOR /00090101/ (ADENOSINE) [Concomitant]
  4. DEPAKOTE [Concomitant]
  5. AVALIDE [Concomitant]
  6. CYMBALTA [Concomitant]

REACTIONS (2)
  - MUSCLE SPASMS [None]
  - NECK PAIN [None]
